FAERS Safety Report 6901846-8 (Version None)
Quarter: 2010Q3

REPORT INFORMATION
  Report Type: 
  Country: None (occurrence: None)
  Receive Date: 20100802
  Receipt Date: 20100802
  Transmission Date: 20110219
  Serious: Yes (Death)
  Sender: FDA-Public Use
  Company Number: None

PATIENT
  Age: 58 Year
  Sex: Female

DRUGS (1)
  1. ENOXAPARIN 40MG/.4ML SANF [Suspect]
     Indication: DEEP VEIN THROMBOSIS
     Dates: start: 20071206, end: 20071208

REACTIONS (10)
  - CARDIO-RESPIRATORY ARREST [None]
  - CELLULITIS [None]
  - DUODENAL ULCER [None]
  - GASTRIC ULCER [None]
  - HAEMATEMESIS [None]
  - HAEMATOCRIT DECREASED [None]
  - HAEMODYNAMIC INSTABILITY [None]
  - HAEMOGLOBIN DECREASED [None]
  - HYPOTENSION [None]
  - THROMBOSIS [None]
